FAERS Safety Report 15691181 (Version 2)
Quarter: 2018Q4

REPORT INFORMATION
  Report Type: Spontaneous
  Country: US (occurrence: US)
  Receive Date: 20181205
  Receipt Date: 20181205
  Transmission Date: 20190205
  Serious: Yes (Other)
  Sender: FDA-Public Use
  Company Number: PHHY2018US170981

PATIENT
  Age: 25 Year
  Sex: Female

DRUGS (5)
  1. LINEZOLID. [Suspect]
     Active Substance: LINEZOLID
     Indication: TUBERCULOSIS
     Dosage: UNK UNK, QD
     Route: 065
  2. AMOXICILLIN AND CLAVULANATE POTASSIUM [Suspect]
     Active Substance: AMOXICILLIN\CLAVULANATE POTASSIUM
     Indication: TUBERCULOSIS
     Dosage: 500/125 MG, Q8H
     Route: 048
  3. CLOFAZIMINE [Suspect]
     Active Substance: CLOFAZIMINE
     Indication: TUBERCULOSIS
     Dosage: UNK UNK, QD
     Route: 065
  4. BEDAQUILINE [Suspect]
     Active Substance: BEDAQUILINE
     Indication: TUBERCULOSIS
     Dosage: UNK UNK, QD
     Route: 065
  5. MEROPENEM. [Suspect]
     Active Substance: MEROPENEM
     Indication: TUBERCULOSIS
     Dosage: 1.5 G, Q8H
     Route: 042

REACTIONS (11)
  - Hypophosphataemia [Unknown]
  - Metabolic acidosis [Unknown]
  - Fatigue [Unknown]
  - Aminoaciduria [Unknown]
  - Urine phosphorus decreased [Unknown]
  - Glycosuria [Unknown]
  - Renal tubular dysfunction [Unknown]
  - Fanconi syndrome [Unknown]
  - Proteinuria [Unknown]
  - Hypouricaemia [Unknown]
  - Paraesthesia [Unknown]
